FAERS Safety Report 18750373 (Version 1)
Quarter: 2021Q1

REPORT INFORMATION
  Report Type: Report from Study
  Country: CA (occurrence: CA)
  Receive Date: 20210118
  Receipt Date: 20210118
  Transmission Date: 20210419
  Serious: Yes (Other)
  Sender: FDA-Public Use
  Company Number: CA-TAKEDA-2020TUS044847

PATIENT
  Age: 67 Year
  Sex: Female
  Weight: 87 kg

DRUGS (6)
  1. GAMMAGARD LIQUID [Suspect]
     Active Substance: HUMAN IMMUNOGLOBULIN G
     Dosage: 34 GRAM, 1/WEEK
     Route: 065
  2. MYCOPHENOLATE [Concomitant]
     Active Substance: MYCOPHENOLIC ACID
     Dosage: UNK
  3. OMEPRAZOLE. [Concomitant]
     Active Substance: OMEPRAZOLE
     Dosage: 20 MILLIGRAM
  4. TEVA PERINDOPRIL [Concomitant]
     Dosage: 2.5 MILLIGRAM
  5. GAMMAGARD LIQUID [Suspect]
     Active Substance: HUMAN IMMUNOGLOBULIN G
     Indication: CHRONIC INFLAMMATORY DEMYELINATING POLYRADICULONEUROPATHY
     Dosage: 34 GRAM, 1/WEEK
     Route: 065
     Dates: start: 20201019
  6. PREVAGEN [APOAEQUORIN] [Concomitant]
     Dosage: UNK

REACTIONS (5)
  - Incorrect product administration duration [Recovered/Resolved]
  - Off label use [Unknown]
  - Treatment noncompliance [Recovered/Resolved]
  - Diabetes mellitus [Unknown]
  - Product administration error [Unknown]

NARRATIVE: CASE EVENT DATE: 20201019
